FAERS Safety Report 11246009 (Version 1)
Quarter: 2015Q3

REPORT INFORMATION
  Report Type: Spontaneous
  Country: GB (occurrence: GB)
  Receive Date: 20150708
  Receipt Date: 20150708
  Transmission Date: 20151125
  Serious: Yes (Other)
  Sender: FDA-Public Use
  Company Number: GB-PAR PHARMACEUTICAL, INC-2015SCPR014108

PATIENT

DRUGS (1)
  1. KETALAR [Suspect]
     Active Substance: KETAMINE HYDROCHLORIDE
     Indication: SUBSTANCE USE
     Dosage: UNK UNK, UNKNOWN
     Route: 065

REACTIONS (6)
  - Urinary tract infection [Unknown]
  - Metaplasia [Unknown]
  - Cystitis ulcerative [Unknown]
  - Lower urinary tract symptoms [Unknown]
  - Reduced bladder capacity [Unknown]
  - Drug abuse [Unknown]
